FAERS Safety Report 16732303 (Version 2)
Quarter: 2019Q3

REPORT INFORMATION
  Report Type: Spontaneous
  Country: ES (occurrence: ES)
  Receive Date: 20190822
  Receipt Date: 20190829
  Transmission Date: 20191005
  Serious: Yes (Life-Threatening, Hospitalization)
  Sender: FDA-Public Use
  Company Number: PHHY2019ES191983

PATIENT
  Age: 52 Year
  Sex: Male
  Weight: 70 kg

DRUGS (2)
  1. METFORMIN [Suspect]
     Active Substance: METFORMIN HYDROCHLORIDE
     Indication: TYPE 2 DIABETES MELLITUS
     Route: 065
  2. EMPAGLIFLOZIN [Suspect]
     Active Substance: EMPAGLIFLOZIN
     Indication: TYPE 2 DIABETES MELLITUS
     Route: 065

REACTIONS (13)
  - Nausea [Recovering/Resolving]
  - Therapeutic response decreased [Unknown]
  - Mental status changes [Recovering/Resolving]
  - Vomiting [Recovering/Resolving]
  - Hyperglycaemia [Recovering/Resolving]
  - Leukocytosis [Unknown]
  - Acute kidney injury [Recovering/Resolving]
  - Neutrophilia [Unknown]
  - Diabetic ketoacidosis [Recovered/Resolved]
  - Hypokalaemia [Recovering/Resolving]
  - Dyspnoea [Recovering/Resolving]
  - Metabolic acidosis [Recovering/Resolving]
  - Abdominal pain [Recovering/Resolving]
